FAERS Safety Report 7498914-1 (Version None)
Quarter: 2011Q2

REPORT INFORMATION
  Report Type: 
  Country: None (occurrence: None)
  Receive Date: 20110524
  Receipt Date: 20110516
  Transmission Date: 20111010
  Serious: Yes (Other)
  Sender: FDA-Public Use
  Company Number: US-JNJFOC-20110507634

PATIENT
  Sex: Female

DRUGS (2)
  1. WELLBUTRIN [Concomitant]
     Route: 048
  2. NUCYNTA [Suspect]
     Indication: ANALGESIC THERAPY
     Dosage: ONE IN 6 HOURS
     Route: 048

REACTIONS (1)
  - SEROTONIN SYNDROME [None]
